FAERS Safety Report 10051128 (Version 1)
Quarter: 2014Q2

REPORT INFORMATION
  Report Type: Spontaneous
  Country: US (occurrence: US)
  Receive Date: 20140401
  Receipt Date: 20140401
  Transmission Date: 20141212
  Serious: No
  Sender: FDA-Public Use
  Company Number: US-ASTRAZENECA-2013SE50185

PATIENT
  Age: 20 Year
  Sex: Male
  Weight: 100.7 kg

DRUGS (8)
  1. NEXIUM [Suspect]
     Indication: GASTROOESOPHAGEAL REFLUX DISEASE
     Route: 048
     Dates: start: 20130618, end: 20130627
  2. LATUDA [Concomitant]
     Indication: OBSESSIVE-COMPULSIVE DISORDER
     Route: 048
     Dates: start: 201107
  3. CLARINEX [Concomitant]
     Indication: HYPERSENSITIVITY
     Route: 048
     Dates: start: 2011
  4. PREVACID [Concomitant]
     Indication: GASTROOESOPHAGEAL REFLUX DISEASE
     Route: 048
     Dates: start: 20130627
  5. BUSPAR [Concomitant]
     Indication: OBSESSIVE-COMPULSIVE DISORDER
     Route: 048
     Dates: start: 201107
  6. LEXAPRO [Concomitant]
     Indication: OBSESSIVE-COMPULSIVE DISORDER
     Route: 048
     Dates: start: 201107
  7. KLONOPIN [Concomitant]
     Indication: OBSESSIVE-COMPULSIVE DISORDER
     Route: 048
     Dates: start: 201107
  8. KLONOPIN [Concomitant]
     Indication: ANXIETY
     Route: 048
     Dates: start: 201107

REACTIONS (1)
  - Nightmare [Recovered/Resolved]
